FAERS Safety Report 19025052 (Version 1)
Quarter: 2021Q1

REPORT INFORMATION
  Report Type: Spontaneous
  Country: FR (occurrence: FR)
  Receive Date: 20210318
  Receipt Date: 20210318
  Transmission Date: 20210420
  Serious: Yes (Life-Threatening, Other)
  Sender: FDA-Public Use
  Company Number: FR-AUROBINDO-AUR-APL-2021-011047

PATIENT
  Age: 48 Year
  Sex: Female
  Weight: 85 kg

DRUGS (8)
  1. IBUPROFEN. [Suspect]
     Active Substance: IBUPROFEN
     Indication: TOXICITY TO VARIOUS AGENTS
     Dosage: 8 GRAM
     Route: 048
     Dates: start: 20210214
  2. ACUPAN [Suspect]
     Active Substance: NEFOPAM HYDROCHLORIDE
     Indication: TOXICITY TO VARIOUS AGENTS
     Dosage: UNK
     Route: 048
     Dates: start: 20210214
  3. ALPRAZOLAM. [Suspect]
     Active Substance: ALPRAZOLAM
     Indication: TOXICITY TO VARIOUS AGENTS
     Dosage: 7.5 GRAM
     Route: 048
     Dates: start: 20210214
  4. KETOPROFEN. [Suspect]
     Active Substance: KETOPROFEN
     Indication: TOXICITY TO VARIOUS AGENTS
     Dosage: 3 GRAM
     Route: 048
     Dates: start: 20210214
  5. PARACETAMOL [Suspect]
     Active Substance: ACETAMINOPHEN
     Indication: TOXICITY TO VARIOUS AGENTS
     Dosage: 48 GRAM
     Route: 048
     Dates: start: 20210214
  6. ACTISKENAN [Suspect]
     Active Substance: MORPHINE SULFATE
     Indication: TOXICITY TO VARIOUS AGENTS
     Dosage: 140 MILLIGRAM
     Route: 048
     Dates: start: 20210214
  7. ANTALNOX [Suspect]
     Active Substance: NAPROXEN SODIUM
     Indication: TOXICITY TO VARIOUS AGENTS
     Dosage: 25.85 GRAM
     Route: 048
     Dates: start: 20210214
  8. CODEINE [Suspect]
     Active Substance: CODEINE
     Indication: TOXICITY TO VARIOUS AGENTS
     Dosage: 960 MILLIGRAM
     Route: 048
     Dates: start: 20210214

REACTIONS (2)
  - Coma [Recovered/Resolved]
  - Metabolic acidosis [Recovered/Resolved]

NARRATIVE: CASE EVENT DATE: 20210215
